FAERS Safety Report 19575526 (Version 5)
Quarter: 2021Q3

REPORT INFORMATION
  Report Type: Spontaneous
  Country: DE (occurrence: DE)
  Receive Date: 20210719
  Receipt Date: 20210902
  Transmission Date: 20211014
  Serious: Yes (Hospitalization, Disabling, Other)
  Sender: FDA-Public Use
  Company Number: DE-UCBSA-2021032913

PATIENT
  Age: 49 Year
  Sex: Male
  Weight: 85 kg

DRUGS (32)
  1. FLUDARABINE [Suspect]
     Active Substance: FLUDARABINE PHOSPHATE
     Dosage: 49.5 MILLIGRAM
     Route: 042
     Dates: start: 20141118
  2. GAZYVARO [Suspect]
     Active Substance: OBINUTUZUMAB
     Dosage: 1000 MILLIGRAM
     Route: 042
     Dates: start: 20141216
  3. DEKRISTOL [Concomitant]
     Active Substance: CHOLECALCIFEROL
     Indication: PRODUCT USED FOR UNKNOWN INDICATION
  4. PRIVIGEN [Suspect]
     Active Substance: HUMAN IMMUNOGLOBULIN G
     Indication: CHRONIC LYMPHOCYTIC LEUKAEMIA
     Dosage: 20 GRAM
     Dates: start: 20160323
  5. FLUDARABINE [Suspect]
     Active Substance: FLUDARABINE PHOSPHATE
     Indication: CHRONIC LYMPHOCYTIC LEUKAEMIA
     Dosage: 49.7 MILLIGRAM
     Route: 042
     Dates: start: 20150312
  6. GAZYVARO [Suspect]
     Active Substance: OBINUTUZUMAB
     Dosage: 1000 MILLIGRAM
     Route: 042
     Dates: start: 20150407
  7. GAZYVARO [Suspect]
     Active Substance: OBINUTUZUMAB
     Dosage: 1000 MILLIGRAM
     Route: 042
     Dates: start: 20141118, end: 20150407
  8. FLUDARABINE [Suspect]
     Active Substance: FLUDARABINE PHOSPHATE
     Dosage: 49.8 MILLIGRAM
     Route: 042
     Dates: start: 20141216
  9. GAZYVARO [Suspect]
     Active Substance: OBINUTUZUMAB
     Dosage: 1000 MILLIGRAM
     Route: 042
     Dates: start: 201502
  10. ALLOPURINOL. [Concomitant]
     Active Substance: ALLOPURINOL
     Indication: PRODUCT USED FOR UNKNOWN INDICATION
  11. FLUDARABINE [Suspect]
     Active Substance: FLUDARABINE PHOSPHATE
     Dosage: 49.5 MILLIGRAM
     Route: 042
     Dates: start: 20141119
  12. CYCLOPHOSPHAMID [Suspect]
     Active Substance: CYCLOPHOSPHAMIDE
     Dosage: 495 MILLIGRAM
     Route: 042
     Dates: start: 20141118
  13. GAZYVARO [Suspect]
     Active Substance: OBINUTUZUMAB
     Indication: CHRONIC LYMPHOCYTIC LEUKAEMIA
     Dosage: 1000 MILLIGRAM
     Route: 042
     Dates: start: 20150113
  14. AMPHOTERICIN B. [Concomitant]
     Active Substance: AMPHOTERICIN B
     Indication: PRODUCT USED FOR UNKNOWN INDICATION
  15. SOLU DACORTIN H [Concomitant]
     Indication: PRODUCT USED FOR UNKNOWN INDICATION
  16. JONOSTERIL [CALCIUM ACETATE;MAGNESIUM ACETATE;POTASSIUM ACETATE;SODIUM [Concomitant]
     Indication: PRODUCT USED FOR UNKNOWN INDICATION
  17. CALCIUMFOLINAT [Concomitant]
     Active Substance: LEUCOVORIN CALCIUM
     Indication: PRODUCT USED FOR UNKNOWN INDICATION
  18. KEPPRA [Suspect]
     Active Substance: LEVETIRACETAM
     Indication: EPILEPSY
     Dosage: UNK
     Dates: start: 20160727, end: 20170710
  19. KIOVIG [Suspect]
     Active Substance: HUMAN IMMUNOGLOBULIN G
     Indication: IMMUNOGLOBULINS DECREASED
     Dosage: UNK
  20. URSOFALK [Suspect]
     Active Substance: URSODIOL
     Indication: DRUG-INDUCED LIVER INJURY
     Dosage: UNK
     Dates: start: 201602, end: 201603
  21. FLUDARABINE [Suspect]
     Active Substance: FLUDARABINE PHOSPHATE
     Dosage: 50 MG
     Route: 042
     Dates: start: 20150114
  22. FLUDARABINE [Suspect]
     Active Substance: FLUDARABINE PHOSPHATE
     Dosage: UNK
     Dates: start: 20141118, end: 20150407
  23. CYCLOPHOSPHAMID [Suspect]
     Active Substance: CYCLOPHOSPHAMIDE
     Dosage: 495 MILLIGRAM
     Route: 042
     Dates: start: 20141119
  24. FLUDARABINE [Suspect]
     Active Substance: FLUDARABINE PHOSPHATE
     Dosage: 50 MILLIGRAM
     Route: 042
     Dates: start: 20150113
  25. FLUDARABINE [Suspect]
     Active Substance: FLUDARABINE PHOSPHATE
     Dosage: 49.7 MILLIGRAM
     Route: 042
     Dates: start: 20150310
  26. CYCLOPHOSPHAMID [Suspect]
     Active Substance: CYCLOPHOSPHAMIDE
     Dosage: 498 MILLIGRAM
     Route: 042
     Dates: start: 20141216
  27. GAZYVARO [Suspect]
     Active Substance: OBINUTUZUMAB
     Dosage: 1000 MILLIGRAM
     Route: 042
     Dates: start: 20150310
  28. CIPROFLOXACIN. [Concomitant]
     Active Substance: CIPROFLOXACIN
     Indication: PRODUCT USED FOR UNKNOWN INDICATION
     Dosage: 500 MILLIGRAM
  29. TOPIRAMAT [Suspect]
     Active Substance: TOPIRAMATE
     Indication: EPILEPSY
     Dosage: UNK
     Dates: end: 20200221
  30. FLUDARABINE [Suspect]
     Active Substance: FLUDARABINE PHOSPHATE
     Dosage: 50 MILLIGRAM
     Route: 042
     Dates: start: 20150115
  31. CYCLOPHOSPHAMID [Suspect]
     Active Substance: CYCLOPHOSPHAMIDE
     Indication: CHRONIC LYMPHOCYTIC LEUKAEMIA
     Dosage: UNK
     Dates: start: 20141118, end: 20150407
  32. PANTOPRAZOLE SODIUM. [Concomitant]
     Active Substance: PANTOPRAZOLE SODIUM
     Indication: PRODUCT USED FOR UNKNOWN INDICATION

REACTIONS (54)
  - Varicella zoster virus infection [Recovered/Resolved]
  - Pruritus [Unknown]
  - Bladder hypertrophy [Unknown]
  - Muscle twitching [Unknown]
  - Dry mouth [Unknown]
  - Rectal tenesmus [Unknown]
  - Blepharospasm [Recovered/Resolved]
  - Hepatic enzyme increased [Not Recovered/Not Resolved]
  - Nausea [Unknown]
  - Infection [Unknown]
  - Initial insomnia [Unknown]
  - Peroneal nerve palsy [Unknown]
  - Gallbladder polyp [Unknown]
  - Gallbladder polyp [Unknown]
  - Vitamin D deficiency [Unknown]
  - Diarrhoea [Recovered/Resolved]
  - Rhinorrhoea [Unknown]
  - Organic brain syndrome [Unknown]
  - Eructation [Unknown]
  - Eye irritation [Unknown]
  - Folliculitis [Unknown]
  - Dizziness [Unknown]
  - Erythema [Unknown]
  - Urge incontinence [Not Recovered/Not Resolved]
  - Oedema peripheral [Unknown]
  - Depression [Unknown]
  - Taste disorder [Unknown]
  - Cytopenia [Unknown]
  - Epilepsy [Not Recovered/Not Resolved]
  - Pain [Unknown]
  - Weight decreased [Unknown]
  - Fungal infection [Unknown]
  - Decreased appetite [Unknown]
  - Pollakiuria [Not Recovered/Not Resolved]
  - Osteoarthritis [Not Recovered/Not Resolved]
  - Bacterial disease carrier [Unknown]
  - Pyrexia [Recovered/Resolved]
  - Abdominal pain [Unknown]
  - Cough [Recovered/Resolved]
  - Benign prostatic hyperplasia [Unknown]
  - Back pain [Unknown]
  - Skin cancer [Unknown]
  - Basal cell carcinoma [Not Recovered/Not Resolved]
  - Toxoplasmosis [Recovered/Resolved with Sequelae]
  - Myelosuppression [Unknown]
  - Encephalitis [Unknown]
  - Blood pressure increased [Recovered/Resolved]
  - Hypersensitivity [Recovered/Resolved]
  - Abdominal pain upper [Unknown]
  - Impulse-control disorder [Recovered/Resolved]
  - Dermatitis atopic [Unknown]
  - Dehydration [Recovered/Resolved]
  - Pneumonia [Recovered/Resolved]
  - Adjustment disorder [Unknown]

NARRATIVE: CASE EVENT DATE: 201503
